FAERS Safety Report 9557565 (Version 1)
Quarter: 2013Q3

REPORT INFORMATION
  Report Type: Spontaneous
  Country: BR (occurrence: None)
  Receive Date: 20130923
  Receipt Date: 20130923
  Transmission Date: 20140515
  Serious: Yes (Hospitalization, Other)
  Sender: FDA-Public Use
  Company Number: AUR-APL-2013-07698

PATIENT
  Sex: Male

DRUGS (7)
  1. ATENOLOL [Suspect]
     Indication: PRODUCT USED FOR UNKNOWN INDICATION
     Dates: start: 2010, end: 20130723
  2. ENALAPRIL [Suspect]
     Indication: PRODUCT USED FOR UNKNOWN INDICATION
     Dosage: 5 MG, 1 IN 1 D), UNKNOWN
     Dates: start: 20130724, end: 20130829
  3. CLOPIDOGREL [Suspect]
     Indication: ANTIPLATELET THERAPY
     Dosage: (75 MG, 1 IN 1 D), UNKNOWN
     Dates: start: 2010, end: 20130819
  4. SELOZOK [Suspect]
     Indication: PRODUCT USED FOR UNKNOWN INDICATION
     Dosage: (50 MG, 1 IN 1 D), ORAL
     Route: 048
     Dates: start: 20130724
  5. BRILINTA [Suspect]
     Indication: ANTIPLATELET THERAPY
     Dosage: 180 MG (90 MG, 2 IN 1 D), ORAL
     Route: 048
     Dates: start: 20130819
  6. ASA (ACETYLSALICYLIC ACID) [Concomitant]
  7. PANTOPROZOLE (PANTOPRAZOLE) [Concomitant]

REACTIONS (4)
  - Myocardial infarction [None]
  - Thrombosis [None]
  - Dysgeusia [None]
  - Platelet aggregation abnormal [None]
